FAERS Safety Report 13514530 (Version 2)
Quarter: 2017Q3

REPORT INFORMATION
  Report Type: Report from Study
  Country: US (occurrence: US)
  Receive Date: 20170504
  Receipt Date: 20170706
  Transmission Date: 20171127
  Serious: Yes (Other)
  Sender: FDA-Public Use
  Company Number: US-BRISTOL-MYERS SQUIBB COMPANY-BMS-2017-036825

PATIENT
  Age: 42 Year
  Sex: Female
  Weight: 113.38 kg

DRUGS (7)
  1. ABATACEPT [Suspect]
     Active Substance: ABATACEPT
     Indication: RHEUMATOID ARTHRITIS
     Dosage: UNK
     Route: 042
     Dates: start: 20160713
  2. MELOXICAM. [Concomitant]
     Active Substance: MELOXICAM
     Indication: PRODUCT USED FOR UNKNOWN INDICATION
     Dosage: UNK
     Route: 065
  3. ABATACEPT [Suspect]
     Active Substance: ABATACEPT
     Indication: PRODUCT USED FOR UNKNOWN INDICATION
     Dosage: UNK
     Route: 042
     Dates: start: 20170403
  4. METHOTREXATE. [Suspect]
     Active Substance: METHOTREXATE
     Indication: RHEUMATOID ARTHRITIS
     Dosage: 15 MG, UNK
     Route: 048
     Dates: start: 20150315
  5. NEXIUM [Concomitant]
     Active Substance: ESOMEPRAZOLE MAGNESIUM
     Indication: GASTROINTESTINAL DISORDER
     Dosage: UNK
     Route: 065
  6. ABATACEPT [Suspect]
     Active Substance: ABATACEPT
     Indication: PRODUCT USED FOR UNKNOWN INDICATION
     Dosage: UNK
     Route: 042
     Dates: start: 201701
  7. ABATACEPT [Suspect]
     Active Substance: ABATACEPT
     Indication: PRODUCT USED FOR UNKNOWN INDICATION
     Dosage: UNK
     Route: 042
     Dates: start: 201607

REACTIONS (17)
  - Oesophageal rupture [Unknown]
  - Headache [Unknown]
  - Gastrointestinal haemorrhage [Unknown]
  - Rheumatoid arthritis [Unknown]
  - Viral infection [Unknown]
  - Joint swelling [Unknown]
  - Gastric ulcer [Unknown]
  - Abdominal pain [Unknown]
  - Vomiting [Unknown]
  - Surgery [Unknown]
  - Trismus [Unknown]
  - Drug ineffective [Unknown]
  - Weight decreased [Unknown]
  - Helicobacter infection [Unknown]
  - Fibromyalgia [Unknown]
  - Diarrhoea [Unknown]
  - Biopsy [Unknown]

NARRATIVE: CASE EVENT DATE: 20170216
